FAERS Safety Report 4880787-4 (Version None)
Quarter: 2006Q1

REPORT INFORMATION
  Report Type: 
  Country: None (occurrence: None)
  Receive Date: 20060111
  Receipt Date: 20040308
  Transmission Date: 20060701
  Serious: No
  Sender: FDA-Public Use
  Company Number: 2004S1000022

PATIENT
  Age: 78 Year
  Weight: 100 kg

DRUGS (1)
  1. CUBICIN [Suspect]
     Indication: STAPHYLOCOCCAL BACTERAEMIA
     Dosage: 400 MG;QD;IV
     Route: 042
     Dates: start: 20031101

REACTIONS (3)
  - BACTERAEMIA [None]
  - CEREBRAL ARTERY THROMBOSIS [None]
  - CONJUNCTIVAL HAEMORRHAGE [None]
